FAERS Safety Report 4746386-X (Version None)
Quarter: 2005Q3

REPORT INFORMATION
  Report Type: 
  Country: None (occurrence: None)
  Receive Date: 20050815
  Receipt Date: 20050804
  Transmission Date: 20060218
  Serious: Yes (Other)
  Sender: FDA-Public Use
  Company Number: 2005112238

PATIENT
  Sex: Male

DRUGS (12)
  1. PRAZOSIN HCL [Suspect]
     Indication: AORTIC DISSECTION
     Dosage: 20 MG (4 MG, 5 IN 1 D), ORAL
     Route: 048
  2. ALBUTEROL SULFATE HFA [Concomitant]
  3. LITHIUM CARBONATE [Concomitant]
  4. TRANDOLAPRIL (TRANDOLAPRIL) [Concomitant]
  5. INDAPAMIDE [Concomitant]
  6. ISOSORBIDE MONONITRATE [Concomitant]
  7. ROSUVASTATIN (ROSUVASTATIN) [Concomitant]
  8. ZOPICLONE (ZOPICLONE) [Concomitant]
  9. PANTOPRAZOLE (PANTOPARAZOLE) [Concomitant]
  10. DILTIAZEM HYDROCHLORIDE [Concomitant]
  11. SERETIDE (FLUTICASONE PROPIONATE, SALMETEROL XINAFOATE) [Concomitant]
  12. SEREVENT [Concomitant]

REACTIONS (4)
  - BEDRIDDEN [None]
  - DIABETES MELLITUS NON-INSULIN-DEPENDENT [None]
  - FEELING ABNORMAL [None]
  - ORTHOSTATIC HYPOTENSION [None]
